FAERS Safety Report 18806088 (Version 2)
Quarter: 2021Q2

REPORT INFORMATION
  Report Type: Spontaneous
  Country: US (occurrence: US)
  Receive Date: 20210128
  Receipt Date: 20210426
  Transmission Date: 20210717
  Serious: Yes (Other)
  Sender: FDA-Public Use
  Company Number: US-ALLERGAN-2103885US

PATIENT
  Sex: Female
  Weight: 119.27 kg

DRUGS (1)
  1. LINZESS [Suspect]
     Active Substance: LINACLOTIDE
     Indication: CONSTIPATION
     Dosage: 290 ?G
     Route: 048
     Dates: start: 20210114

REACTIONS (4)
  - Diarrhoea [Unknown]
  - Vomiting [Unknown]
  - Incorrect dose administered [Unknown]
  - Syncope [Unknown]

NARRATIVE: CASE EVENT DATE: 20210121
